FAERS Safety Report 9409359 (Version 3)
Quarter: 2013Q3

REPORT INFORMATION
  Report Type: Spontaneous
  Country: US (occurrence: None)
  Receive Date: 20130422
  Receipt Date: 20130815
  Transmission Date: 20140515
  Serious: Yes (Hospitalization, Other)
  Sender: FDA-Public Use
  Company Number: ADR-2013-00647

PATIENT
  Sex: Male

DRUGS (1)
  1. BACLOFEN [Suspect]
     Indication: MUSCLE SPASTICITY

REACTIONS (16)
  - Muscle spasticity [None]
  - Muscle tightness [None]
  - Insomnia [None]
  - Paraesthesia [None]
  - Pruritus [None]
  - Burning sensation [None]
  - Fatigue [None]
  - Impaired work ability [None]
  - Discomfort [None]
  - Mental disorder [None]
  - Adhesion [None]
  - Device connection issue [None]
  - Drug withdrawal syndrome [None]
  - Hyperhidrosis [None]
  - Agitation [None]
  - Implant site fibrosis [None]
